FAERS Safety Report 10504210 (Version 5)
Quarter: 2015Q1

REPORT INFORMATION
  Report Type: Spontaneous
  Country: US (occurrence: None)
  Receive Date: 20141006
  Receipt Date: 20150316
  Transmission Date: 20150720
  Serious: Yes (Hospitalization, Other)
  Sender: FDA-Public Use
  Company Number: ADR-2014-01818

PATIENT
  Age: 68 Year
  Sex: Male

DRUGS (1)
  1. LIORESAL [Suspect]
     Active Substance: BACLOFEN
     Indication: MUSCLE SPASTICITY

REACTIONS (15)
  - Device failure [None]
  - Drug withdrawal syndrome [None]
  - Procedural vomiting [None]
  - Overdose [None]
  - Depressed level of consciousness [None]
  - Vomiting [None]
  - Device occlusion [None]
  - Musculoskeletal disorder [None]
  - Device alarm issue [None]
  - Device issue [None]
  - Coma [None]
  - Balance disorder [None]
  - Medical device change [None]
  - Muscle spasms [None]
  - Hypertonia [None]
